FAERS Safety Report 9037925 (Version 1)
Quarter: 2013Q1

REPORT INFORMATION
  Report Type: Spontaneous
  Country: CO (occurrence: CO)
  Receive Date: 20130129
  Receipt Date: 20130129
  Transmission Date: 20140127
  Serious: Yes (Other)
  Sender: FDA-Public Use
  Company Number: CO-JNJFOC-20130113248

PATIENT
  Age: 20 Year
  Sex: Male

DRUGS (1)
  1. STELARA [Suspect]
     Indication: PSORIASIS
     Route: 065
     Dates: start: 20121229

REACTIONS (2)
  - Nasal abscess [Recovering/Resolving]
  - Dermatomyositis [Unknown]
